FAERS Safety Report 4576135-X (Version None)
Quarter: 2005Q1

REPORT INFORMATION
  Report Type: 
  Country: None (occurrence: None)
  Receive Date: 20050201
  Receipt Date: 20050201
  Transmission Date: 20050727
  Serious: Yes (Other)
  Sender: FDA-Public Use
  Company Number: None

PATIENT
  Sex: Female
  Weight: 99.7913 kg

DRUGS (2)
  1. BEXTRA [Suspect]
     Indication: SJOGREN'S SYNDROME
     Dosage: 1   DAILY   ORAL
     Route: 048
     Dates: start: 20020301, end: 20050131
  2. BEXTRA [Suspect]
     Indication: SYSTEMIC LUPUS ERYTHEMATOSUS
     Dosage: 1   DAILY   ORAL
     Route: 048
     Dates: start: 20020301, end: 20050131

REACTIONS (6)
  - BLOOD BLISTER [None]
  - MOUTH HAEMORRHAGE [None]
  - POST PROCEDURAL HAEMORRHAGE [None]
  - SCAR [None]
  - SKIN HAEMORRHAGE [None]
  - SKIN ULCER [None]
